FAERS Safety Report 6057397-9 (Version None)
Quarter: 2009Q1

REPORT INFORMATION
  Report Type: 
  Country: None (occurrence: None)
  Receive Date: 20090126
  Receipt Date: 20090107
  Transmission Date: 20090719
  Serious: Yes (Death)
  Sender: FDA-Public Use
  Company Number: B0553716A

PATIENT
  Age: 84 Year
  Sex: Female

DRUGS (1)
  1. DIGOXIN [Suspect]
     Dosage: ORAL
     Route: 048

REACTIONS (2)
  - ADVERSE DRUG REACTION [None]
  - CARDIOACTIVE DRUG LEVEL ABOVE THERAPEUTIC [None]
